FAERS Safety Report 6700371-7 (Version None)
Quarter: 2010Q2

REPORT INFORMATION
  Report Type: 
  Country: None (occurrence: None)
  Receive Date: 20100428
  Receipt Date: 20100421
  Transmission Date: 20101027
  Serious: Yes (Hospitalization)
  Sender: FDA-Public Use
  Company Number: AU-ROCHE-690935

PATIENT
  Sex: Male
  Weight: 49 kg

DRUGS (14)
  1. BEVACIZUMAB [Suspect]
     Indication: NON-SMALL CELL LUNG CANCER
     Dosage: FORM: FLUID.  FREQUENCY: 3/52.
     Route: 042
     Dates: start: 20090706
  2. BEVACIZUMAB [Suspect]
     Dosage: CYCLE: 7 STARTED.
     Route: 042
     Dates: start: 20091214
  3. BEVACIZUMAB [Suspect]
     Dosage: PERMANENTLY DISCONTINUED, FREQUENCY REPORTED AS 3/52,FORM: FLUID
     Route: 042
     Dates: end: 20100309
  4. CARBOPLATIN [Suspect]
     Indication: NON-SMALL CELL LUNG CANCER
     Dosage: FREQUENCY: 3/52, FORM: FLUID, UNIT: MG.  DATE OF LAST DOSE PRIOR TO SAE: 23 NOVEMBER 2009.
     Route: 042
     Dates: start: 20090706
  5. GEMCITABINE HCL [Suspect]
     Indication: NON-SMALL CELL LUNG CANCER
     Dosage: FREQUENCY: D1+D8.  FORM: FLUID. LAST DOSE PRIOR TO SAE 23 NOV 2009
     Route: 042
     Dates: start: 20090706, end: 20091130
  6. ALLOPURINOL [Concomitant]
  7. ALLOPURINOL [Concomitant]
     Dates: start: 20100311
  8. IRBESARTAN [Concomitant]
     Dosage: DRUG NAME: IBESARTAN.
     Dates: start: 20050101
  9. SIMVASTATIN [Concomitant]
     Dates: start: 19900101
  10. MOVICOL [Concomitant]
     Dosage: DOSE: 1 SACH/PRN.
     Dates: start: 20090530
  11. COLOXYL WITH SENNA [Concomitant]
     Dosage: TDD: 2 TABS.
     Dates: start: 20090530
  12. LACTULOSE [Concomitant]
     Dates: start: 20090706
  13. METOCLOPRAMIDE HYDROCHLORIDE [Concomitant]
     Dates: start: 20090706
  14. FENTANYL-25 [Concomitant]
     Dosage: STARTED IN  UNSPECIFIED DATE IN 2010

REACTIONS (1)
  - CEREBRAL INFARCTION [None]
